FAERS Safety Report 4717907-8 (Version None)
Quarter: 2005Q3

REPORT INFORMATION
  Report Type: 
  Country: None (occurrence: None)
  Receive Date: 20050715
  Receipt Date: 20050706
  Transmission Date: 20060218
  Serious: Yes (Hospitalization)
  Sender: FDA-Public Use
  Company Number: 2005-02356

PATIENT
  Age: 54 Year
  Sex: Female

DRUGS (6)
  1. METRONIDAZOLE [Suspect]
     Indication: GASTRIC ULCER
     Dosage: 1 G, DAILY,ORAL
     Route: 048
     Dates: start: 20020302, end: 20020507
  2. METRONIDAZOLE [Suspect]
     Indication: HELICOBACTER INFECTION
     Dosage: 1 G, DAILY,ORAL
     Route: 048
     Dates: start: 20020302, end: 20020507
  3. CYCLOSPORINE [Concomitant]
  4. PREDNISOLONE [Concomitant]
  5. AMOXICILLIN [Concomitant]
  6. PROTON-PUMP INHIBITOR [Concomitant]

REACTIONS (1)
  - NERVOUS SYSTEM DISORDER [None]
